FAERS Safety Report 20269441 (Version 2)
Quarter: 2022Q1

REPORT INFORMATION
  Report Type: Spontaneous
  Country: US (occurrence: US)
  Receive Date: 20220101
  Receipt Date: 20220203
  Transmission Date: 20220423
  Serious: No
  Sender: FDA-Public Use
  Company Number: US-UNITED THERAPEUTICS-UNT-2021-026965

PATIENT
  Sex: Female
  Weight: 83.9 kg

DRUGS (3)
  1. REMODULIN [Suspect]
     Active Substance: TREPROSTINIL
     Indication: Pulmonary arterial hypertension
     Dosage: UNK UNK, CONTINUING
     Route: 058
     Dates: start: 20211019
  2. REMODULIN [Suspect]
     Active Substance: TREPROSTINIL
     Dosage: 0.0716 ?G/KG, CONTINUING (PRE-FILED WITH 3ML PER CASSETTE; PUMP RATE 46 MCL/HR)
     Route: 058
     Dates: start: 2021
  3. ADCIRCA [Concomitant]
     Active Substance: TADALAFIL
     Indication: Pulmonary arterial hypertension
     Dosage: UNK
     Route: 065

REACTIONS (1)
  - Nasopharyngitis [Recovered/Resolved]

NARRATIVE: CASE EVENT DATE: 20210101
